FAERS Safety Report 8758486 (Version 5)
Quarter: 2014Q1

REPORT INFORMATION
  Report Type: Spontaneous
  Country: US (occurrence: US)
  Receive Date: 20120829
  Receipt Date: 20140128
  Transmission Date: 20141002
  Serious: Yes (Other)
  Sender: FDA-Public Use
  Company Number: US-SANOFI-AVENTIS-2012SA044261

PATIENT
  Age: 53 Year
  Sex: Female

DRUGS (12)
  1. ENOXAPARIN SODIUM - WINTHROP [Suspect]
     Indication: COAGULOPATHY
     Route: 065
     Dates: start: 2008
  2. ENOXAPARIN SODIUM - WINTHROP [Suspect]
     Indication: ANTIPHOSPHOLIPID ANTIBODIES
     Route: 065
     Dates: start: 2008
  3. ENOXAPARIN SODIUM - WINTHROP [Suspect]
     Indication: BLOOD DISORDER
     Route: 065
     Dates: start: 2008
  4. ENOXAPARIN SODIUM - WINTHROP [Suspect]
     Indication: COAGULOPATHY
     Route: 065
     Dates: start: 2008
  5. ENOXAPARIN SODIUM - WINTHROP [Suspect]
     Indication: ANTIPHOSPHOLIPID ANTIBODIES
     Route: 065
     Dates: start: 2008
  6. ENOXAPARIN SODIUM - WINTHROP [Suspect]
     Indication: BLOOD DISORDER
     Route: 065
     Dates: start: 2008
  7. ENOXAPARIN SODIUM - WINTHROP [Suspect]
     Indication: COAGULOPATHY
     Route: 051
  8. ENOXAPARIN SODIUM - WINTHROP [Suspect]
     Indication: ANTIPHOSPHOLIPID ANTIBODIES
     Route: 051
  9. ENOXAPARIN SODIUM - WINTHROP [Suspect]
     Indication: BLOOD DISORDER
     Route: 051
  10. JANUVIA [Concomitant]
     Indication: DIABETES MELLITUS
  11. CREON [Concomitant]
     Indication: PANCREATIC DISORDER
  12. CREON [Concomitant]
     Indication: CARPUS CURVUS

REACTIONS (22)
  - Lipomatosis [Not Recovered/Not Resolved]
  - Condition aggravated [Not Recovered/Not Resolved]
  - Abdominal mass [Not Recovered/Not Resolved]
  - Intestinal obstruction [Not Recovered/Not Resolved]
  - Autoimmune disorder [Not Recovered/Not Resolved]
  - Visual impairment [Not Recovered/Not Resolved]
  - Urine albumin/creatinine ratio increased [Not Recovered/Not Resolved]
  - Diverticulum intestinal [Not Recovered/Not Resolved]
  - Fluid retention [Not Recovered/Not Resolved]
  - Abdominal distension [Not Recovered/Not Resolved]
  - Gastrointestinal pain [Not Recovered/Not Resolved]
  - Diarrhoea [Unknown]
  - Malaise [Unknown]
  - Abdominal pain upper [Unknown]
  - Arthropathy [Unknown]
  - Back pain [Unknown]
  - Weight decreased [Unknown]
  - Blood glucose increased [Not Recovered/Not Resolved]
  - Tooth loss [Not Recovered/Not Resolved]
  - Rash [Not Recovered/Not Resolved]
  - Osteopenia [Not Recovered/Not Resolved]
  - Bone loss [Not Recovered/Not Resolved]
